FAERS Safety Report 5917610-2 (Version None)
Quarter: 2008Q4

REPORT INFORMATION
  Report Type: 
  Country: None (occurrence: None)
  Receive Date: 20081014
  Receipt Date: 20081009
  Transmission Date: 20090506
  Serious: Yes (Hospitalization)
  Sender: FDA-Public Use
  Company Number: DK-MERCK-0810DNK00005

PATIENT
  Sex: Female
  Weight: 98 kg

DRUGS (11)
  1. ZOCOR [Suspect]
     Indication: HYPERCHOLESTEROLAEMIA
     Route: 048
     Dates: start: 20030101, end: 20060101
  2. ATORVASTATIN CALCIUM [Concomitant]
     Indication: HYPERCHOLESTEROLAEMIA
     Route: 048
     Dates: start: 20060101, end: 20060912
  3. ATORVASTATIN CALCIUM [Concomitant]
     Route: 048
     Dates: start: 20060913, end: 20080724
  4. INSULIN ASPART [Concomitant]
     Route: 058
     Dates: start: 20070102
  5. METFORMIN HYDROCHLORIDE [Concomitant]
     Route: 048
     Dates: start: 20070515
  6. POTASSIUM CHLORIDE [Concomitant]
     Route: 048
     Dates: start: 20070102
  7. CLOPIDOGREL BISULFATE [Concomitant]
     Route: 048
     Dates: start: 20070102
  8. FUROSEMIDE [Concomitant]
     Route: 048
     Dates: start: 20070102
  9. METOPROLOL TARTRATE [Concomitant]
     Route: 048
     Dates: start: 20070102
  10. AMLODIPINE BESYLATE [Concomitant]
     Route: 048
     Dates: start: 20070102, end: 20071001
  11. VALSARTAN [Concomitant]
     Route: 048
     Dates: start: 20070102

REACTIONS (13)
  - AMNESIA [None]
  - ANXIETY [None]
  - ARTHRALGIA [None]
  - DISTURBANCE IN ATTENTION [None]
  - INSOMNIA [None]
  - MENTAL DISORDER [None]
  - MYALGIA [None]
  - NIGHTMARE [None]
  - PNEUMONIA [None]
  - RESPIRATORY TRACT INFECTION [None]
  - SKIN DISORDER [None]
  - TREMOR [None]
  - VERTIGO [None]
